FAERS Safety Report 8453860-1 (Version None)
Quarter: 2012Q2

REPORT INFORMATION
  Report Type: 
  Country: None (occurrence: None)
  Receive Date: 20120323
  Receipt Date: 20111101
  Transmission Date: 20120825
  Serious: Yes (Hospitalization)
  Sender: FDA-Public Use
  Company Number: 163-21880-11110362

PATIENT
  Age: 75 Year
  Sex: Female
  Weight: 62.5964 kg

DRUGS (13)
  1. CARDIZEM LA [Concomitant]
  2. REVLIMID [Suspect]
     Indication: MYELODYSPLASTIC SYNDROME
     Dosage: 5 MG, QD X 28 D Q 28D,PO
     Route: 048
     Dates: start: 20111017, end: 20111027
  3. MULTIVITAMIN [Concomitant]
  4. PROCRIT [Concomitant]
  5. BLOOD (BLOOD AND RELATED PRODUCTS) [Concomitant]
  6. FLUOCINOLNE ACETONIDE (FLUOCINOLONE ACETONIDE) [Concomitant]
  7. VICODIN [Concomitant]
  8. HYDROXYZINE HYDROCHLORIDE [Concomitant]
  9. NEURONTIN [Concomitant]
  10. PRAVASTATIN [Concomitant]
  11. CALCIU +VIT D (CALCIUM D3 ^STADA^) [Concomitant]
  12. PREVACID [Concomitant]
  13. MIRAPEX ER (PRAMIPEXOLE DIHYROCHLORIDE) [Concomitant]

REACTIONS (5)
  - LOCALISED INFECTION [None]
  - CHEST PAIN [None]
  - WHITE BLOOD CELL COUNT DECREASED [None]
  - FATIGUE [None]
  - PLATELET COUNT DECREASED [None]
